FAERS Safety Report 23096215 (Version 1)
Quarter: 2023Q4

REPORT INFORMATION
  Report Type: Spontaneous
  Country: US (occurrence: US)
  Receive Date: 20231023
  Receipt Date: 20231023
  Transmission Date: 20240110
  Serious: Yes (Other)
  Sender: FDA-Public Use
  Company Number: US-PFIZER INC-202300329877

PATIENT
  Age: 61 Year
  Sex: Female
  Weight: 64.41 kg

DRUGS (1)
  1. EPINEPHRINE [Suspect]
     Active Substance: EPINEPHRINE
     Indication: Syncope
     Dosage: UNK

REACTIONS (4)
  - Condition aggravated [Unknown]
  - Urticaria [Unknown]
  - C-reactive protein increased [Unknown]
  - Off label use [Unknown]

NARRATIVE: CASE EVENT DATE: 20231010
